FAERS Safety Report 5924246-6 (Version None)
Quarter: 2008Q4

REPORT INFORMATION
  Report Type: 
  Country: None (occurrence: None)
  Receive Date: 20081020
  Receipt Date: 20081008
  Transmission Date: 20090506
  Serious: Yes (Death)
  Sender: FDA-Public Use
  Company Number: PH-PFIZER INC-2008082059

PATIENT
  Age: 80 Year
  Sex: Male

DRUGS (2)
  1. ZITHROMAX [Suspect]
     Indication: PNEUMONIA
     Route: 042
  2. CEFUROXIME [Concomitant]

REACTIONS (8)
  - ABDOMINAL PAIN [None]
  - CARDIAC ARREST [None]
  - ELECTROMECHANICAL DISSOCIATION [None]
  - HYPOTENSION [None]
  - HYPOXIC ENCEPHALOPATHY [None]
  - MEDICATION ERROR [None]
  - STATUS EPILEPTICUS [None]
  - SYNCOPE [None]
